FAERS Safety Report 22259898 (Version 1)
Quarter: 2023Q2

REPORT INFORMATION
  Report Type: Report from Study
  Country: BR (occurrence: BR)
  Receive Date: 20230427
  Receipt Date: 20230427
  Transmission Date: 20230721
  Serious: Yes (Hospitalization, Other)
  Sender: FDA-Public Use
  Company Number: BR-JNJFOC-20230449471

PATIENT
  Age: 53 Year
  Sex: Female

DRUGS (2)
  1. SIMPONI [Suspect]
     Active Substance: GOLIMUMAB
     Indication: Rheumatoid arthritis
     Route: 058
     Dates: start: 20171005
  2. SIMPONI [Suspect]
     Active Substance: GOLIMUMAB

REACTIONS (6)
  - Coronary artery disease [Unknown]
  - Gastric ulcer haemorrhage [Not Recovered/Not Resolved]
  - Sympathectomy [Unknown]
  - Thrombosis [Unknown]
  - Anaemia [Unknown]
  - COVID-19 [Unknown]

NARRATIVE: CASE EVENT DATE: 20210914
